FAERS Safety Report 23800868 (Version 1)
Quarter: 2024Q2

REPORT INFORMATION
  Report Type: Report from Study
  Country: DE (occurrence: None)
  Receive Date: 20240430
  Receipt Date: 20240430
  Transmission Date: 20240715
  Serious: Yes (Other)
  Sender: FDA-Public Use
  Company Number: 2024A096376

PATIENT

DRUGS (1)
  1. ACALABRUTINIB [Suspect]
     Active Substance: ACALABRUTINIB
     Indication: Chronic lymphocytic leukaemia

REACTIONS (1)
  - Thrombotic thrombocytopenic purpura [Recovered/Resolved]

NARRATIVE: CASE EVENT DATE: 20190726
